FAERS Safety Report 16310706 (Version 1)
Quarter: 2019Q2

REPORT INFORMATION
  Report Type: Spontaneous
  Country: ZA (occurrence: ZA)
  Receive Date: 20190514
  Receipt Date: 20190514
  Transmission Date: 20190711
  Serious: Yes (Hospitalization)
  Sender: FDA-Public Use
  Company Number: ZA-MYLANLABS-2019M1044919

PATIENT
  Age: 22 Year
  Sex: Female

DRUGS (1)
  1. CONTRAMYL XR 36 MG [Suspect]
     Active Substance: METHYLPHENIDATE
     Indication: ATTENTION DEFICIT/HYPERACTIVITY DISORDER
     Dosage: 36 MILLIGRAM, QD

REACTIONS (1)
  - Suicidal ideation [Unknown]
